FAERS Safety Report 6972834 (Version 12)
Quarter: 2015Q4

REPORT INFORMATION
  Report Type: Report from Study
  Country: US (occurrence: US)
  Receive Date: 20090420
  Receipt Date: 20151020
  Transmission Date: 20160305
  Serious: Yes (Hospitalization)
  Sender: FDA-Public Use
  Company Number: US-JNJFOC-20090402342

PATIENT
  Age: 15 Year
  Sex: Female
  Weight: 47.4 kg

DRUGS (18)
  1. INFLIXIMAB [Suspect]
     Active Substance: INFLIXIMAB
     Indication: CROHN^S DISEASE
     Dosage: RECEIVED INDUCTION DOSING AT WEEK 0, 2, AND 6 AND THEN MAINTENANCE OF EVERY 8 WEEKS
     Route: 042
     Dates: start: 20080515
  2. INFLIXIMAB [Suspect]
     Active Substance: INFLIXIMAB
     Indication: CROHN^S DISEASE
     Route: 042
     Dates: start: 20070711
  3. HUMIRA [Concomitant]
     Active Substance: ADALIMUMAB
     Dosage: LAST DOSE WAS CLOSE TO 28-APR-2008
  4. METRONIDAZOLE. [Concomitant]
     Active Substance: METRONIDAZOLE
  5. POLYSACCHARIDE-IRON COMPLEX [Concomitant]
  6. PERIACTIN [Concomitant]
     Active Substance: CYPROHEPTADINE HYDROCHLORIDE
  7. ANTIBIOTICS [Concomitant]
     Active Substance: UNSPECIFIED INGREDIENT
     Indication: CROHN^S DISEASE
  8. HUMIRA [Concomitant]
     Active Substance: ADALIMUMAB
     Dosage: TAKEN AT BASELINE VISIT 1. RECEIVED A DOSE ON 21-APR-2008
     Dates: start: 20070921
  9. INFLIXIMAB [Suspect]
     Active Substance: INFLIXIMAB
     Indication: CROHN^S DISEASE
     Route: 042
     Dates: start: 20080820
  10. INFLIXIMAB [Suspect]
     Active Substance: INFLIXIMAB
     Indication: CROHN^S DISEASE
     Route: 042
     Dates: start: 20080624
  11. INFLIXIMAB [Suspect]
     Active Substance: INFLIXIMAB
     Indication: CROHN^S DISEASE
     Route: 042
     Dates: start: 20060517
  12. ANTIBIOTICS [Concomitant]
     Active Substance: UNSPECIFIED INGREDIENT
     Indication: INFLAMMATORY BOWEL DISEASE
  13. ANTIHISTAMINES [Concomitant]
     Active Substance: ANTIHISTAMINES NOS
     Indication: PREMEDICATION
  14. INFLIXIMAB [Suspect]
     Active Substance: INFLIXIMAB
     Indication: CROHN^S DISEASE
     Route: 042
     Dates: start: 20080527
  15. PREDNISONE. [Concomitant]
     Active Substance: PREDNISONE
  16. INFLIXIMAB [Suspect]
     Active Substance: INFLIXIMAB
     Indication: CROHN^S DISEASE
     Route: 042
     Dates: start: 20090303
  17. ACETAMINOPHEN. [Concomitant]
     Active Substance: ACETAMINOPHEN
     Indication: PREMEDICATION
  18. CIPROFLOXACIN. [Concomitant]
     Active Substance: CIPROFLOXACIN

REACTIONS (4)
  - Small intestinal obstruction [Recovered/Resolved with Sequelae]
  - Abscess intestinal [Recovered/Resolved with Sequelae]
  - Large intestine perforation [Recovered/Resolved]
  - Melanocytic naevus [Recovered/Resolved]

NARRATIVE: CASE EVENT DATE: 20090325
